FAERS Safety Report 14896158 (Version 1)
Quarter: 2018Q2

REPORT INFORMATION
  Report Type: Spontaneous
  Country: US (occurrence: US)
  Receive Date: 20180515
  Receipt Date: 20180515
  Transmission Date: 20180711
  Serious: Yes (Hospitalization, Other)
  Sender: FDA-Public Use
  Company Number: US-MACLEODS PHARMACEUTICALS US LTD-MAC2018013252

PATIENT

DRUGS (4)
  1. CLONIDINE. [Concomitant]
     Active Substance: CLONIDINE
     Dosage: 0.3 UNK
     Route: 065
  2. ARIPIPRAZOLE. [Suspect]
     Active Substance: ARIPIPRAZOLE
     Indication: MANIA
     Dosage: 2.5 MILLIGRAM, QD
     Route: 065
  3. ONDANSETRON [Concomitant]
     Active Substance: ONDANSETRON
     Indication: PRODUCT USED FOR UNKNOWN INDICATION
     Dosage: UNK
     Route: 065
  4. CLONIDINE. [Concomitant]
     Active Substance: CLONIDINE
     Indication: MANIA
     Dosage: 0.4 MILLIGRAM
     Route: 065

REACTIONS (22)
  - Anal incontinence [Unknown]
  - Abnormal behaviour [Unknown]
  - Echopraxia [Unknown]
  - Clonus [Unknown]
  - Staring [Unknown]
  - Agitation [Unknown]
  - Withdrawal syndrome [Unknown]
  - Cogwheel rigidity [Unknown]
  - Posturing [Unknown]
  - Stereotypy [Unknown]
  - Headache [Unknown]
  - Neuroleptic malignant syndrome [Unknown]
  - Slow speech [Unknown]
  - Serotonin syndrome [Unknown]
  - Oropharyngeal pain [Unknown]
  - Tremor [Unknown]
  - Aggression [Unknown]
  - Drooling [Unknown]
  - Abdominal pain [Unknown]
  - Hypertension [Unknown]
  - Urinary incontinence [Unknown]
  - Akathisia [Unknown]
